FAERS Safety Report 9465056 (Version 2)
Quarter: 2013Q3

REPORT INFORMATION
  Report Type: Spontaneous
  Country: US (occurrence: US)
  Receive Date: 20130819
  Receipt Date: 20130916
  Transmission Date: 20140515
  Serious: No
  Sender: FDA-Public Use
  Company Number: US-TEVA-424320USA

PATIENT
  Age: 34 Year
  Sex: Female
  Weight: 68.1 kg

DRUGS (1)
  1. PARAGARD 380A [Suspect]
     Indication: CONTRACEPTION
     Route: 015
     Dates: start: 20121005, end: 20130724

REACTIONS (6)
  - Muscle spasms [Recovered/Resolved]
  - Abdominal pain lower [Recovered/Resolved]
  - Menorrhagia [Unknown]
  - Metrorrhagia [Unknown]
  - Dysmenorrhoea [Unknown]
  - Dyspareunia [Unknown]
